FAERS Safety Report 19620625 (Version 1)
Quarter: 2021Q3

REPORT INFORMATION
  Report Type: Spontaneous
  Country: US (occurrence: US)
  Receive Date: 20210728
  Receipt Date: 20210728
  Transmission Date: 20211014
  Serious: Yes (Hospitalization)
  Sender: FDA-Public Use
  Company Number: US-SUN PHARMACEUTICAL INDUSTRIES LTD-2021R1-305611

PATIENT
  Age: 33 Year
  Sex: Female

DRUGS (2)
  1. PHENTERMINE. [Suspect]
     Active Substance: PHENTERMINE
     Indication: PRODUCT USED FOR UNKNOWN INDICATION
     Dosage: 30 MILLIGRAM
     Route: 065
  2. PHENTERMINE. [Suspect]
     Active Substance: PHENTERMINE
     Dosage: 37.5 MILLIGRAM
     Route: 065

REACTIONS (4)
  - Anger [Recovered/Resolved]
  - Mood swings [Recovered/Resolved]
  - Substance-induced psychotic disorder [Recovered/Resolved]
  - Paranoia [Recovered/Resolved]
